FAERS Safety Report 5803193-4 (Version None)
Quarter: 2008Q3

REPORT INFORMATION
  Report Type: 
  Country: None (occurrence: None)
  Receive Date: 20080708
  Receipt Date: 20080311
  Transmission Date: 20090109
  Serious: Yes (Death)
  Sender: FDA-Public Use
  Company Number: JP-BRISTOL-MYERS SQUIBB COMPANY-14118665

PATIENT
  Age: 3 Decade
  Sex: Male

DRUGS (2)
  1. ABILIFY [Suspect]
     Indication: SCHIZOPHRENIA
     Route: 048
     Dates: start: 20071001, end: 20080226
  2. ZYPREXA [Suspect]
     Route: 048
     Dates: start: 20080226, end: 20080304

REACTIONS (1)
  - SUDDEN DEATH [None]
